FAERS Safety Report 7071172-8 (Version None)
Quarter: 2010Q4

REPORT INFORMATION
  Report Type: 
  Country: None (occurrence: None)
  Receive Date: 20101027
  Receipt Date: 20101027
  Transmission Date: 20110411
  Serious: Yes (Hospitalization)
  Sender: FDA-Public Use
  Company Number: None

PATIENT
  Sex: Male
  Weight: 83.5 kg

DRUGS (3)
  1. GEMCITABINE [Suspect]
     Indication: NON-SMALL CELL LUNG CANCER
     Dosage: 1250MG/M2 D1+D8 Q21 DAYS
     Dates: start: 20101018
  2. DOCETAXEL [Suspect]
     Indication: NON-SMALL CELL LUNG CANCER
     Dosage: 40MG/M2 D1+D8 Q21 DAYS
     Dates: start: 20101018
  3. SEE NEXT PAGE [Concomitant]

REACTIONS (3)
  - FATIGUE [None]
  - MENTAL STATUS CHANGES [None]
  - PNEUMONIA [None]
